FAERS Safety Report 6658602-8 (Version None)
Quarter: 2010Q1

REPORT INFORMATION
  Report Type: 
  Country: None (occurrence: None)
  Receive Date: 20100330
  Receipt Date: 20100304
  Transmission Date: 20100710
  Serious: No
  Sender: FDA-Public Use
  Company Number: US-BIOGENIDEC-2010BI007736

PATIENT
  Age: 49 Year
  Sex: Female

DRUGS (3)
  1. TYSABRI [Suspect]
     Indication: MULTIPLE SCLEROSIS
     Route: 042
     Dates: start: 20080903, end: 20090529
  2. TYSABRI [Suspect]
     Route: 042
     Dates: start: 20091211
  3. SOLU-MEDROL [Concomitant]

REACTIONS (5)
  - BONE PAIN [None]
  - CHILLS [None]
  - HYPERHIDROSIS [None]
  - HYPERTENSION [None]
  - MYALGIA [None]
